FAERS Safety Report 11528186 (Version 1)
Quarter: 2015Q3

REPORT INFORMATION
  Report Type: Spontaneous
  Country: US (occurrence: US)
  Receive Date: 20150921
  Receipt Date: 20150921
  Transmission Date: 20151125
  Serious: Yes (Other)
  Sender: FDA-Public Use
  Company Number: US-TEVA-552815USA

PATIENT
  Age: 54 Year
  Sex: Female

DRUGS (1)
  1. CARBAMAZEPINE. [Suspect]
     Active Substance: CARBAMAZEPINE
     Indication: BRAIN NEOPLASM
     Route: 065
     Dates: start: 20150130, end: 20150331

REACTIONS (19)
  - Myalgia [Unknown]
  - Rash [Unknown]
  - Viral infection [Unknown]
  - Paraesthesia [Unknown]
  - Oropharyngeal pain [Unknown]
  - Ageusia [Unknown]
  - Stomatitis [Unknown]
  - Confusional state [Unknown]
  - Fatigue [Unknown]
  - Suicidal ideation [Unknown]
  - Seizure [Unknown]
  - Asthenia [Unknown]
  - Insomnia [Unknown]
  - Decreased appetite [Unknown]
  - Dyskinesia [Unknown]
  - Vomiting [Unknown]
  - Thrombosis [Unknown]
  - Abnormal behaviour [Unknown]
  - Nausea [Unknown]

NARRATIVE: CASE EVENT DATE: 201502
